FAERS Safety Report 6872067-2 (Version None)
Quarter: 2010Q3

REPORT INFORMATION
  Report Type: 
  Country: None (occurrence: None)
  Receive Date: 20100723
  Receipt Date: 20100713
  Transmission Date: 20110219
  Serious: Yes (Other)
  Sender: FDA-Public Use
  Company Number: JP-PFIZER INC-2010086858

PATIENT

DRUGS (2)
  1. AZULFIDINE [Suspect]
     Route: 048
  2. METHOTREXATE [Suspect]

REACTIONS (1)
  - LYMPHOMA [None]
